FAERS Safety Report 7305259-9 (Version None)
Quarter: 2011Q1

REPORT INFORMATION
  Report Type: 
  Country: None (occurrence: None)
  Receive Date: 20110222
  Receipt Date: 20110210
  Transmission Date: 20110831
  Serious: Yes (Hospitalization, Other)
  Sender: FDA-Public Use
  Company Number: FR-GENZYME-THYM-1002305

PATIENT
  Sex: Female

DRUGS (12)
  1. CELLCEPT [Concomitant]
     Indication: PRODUCT USED FOR UNKNOWN INDICATION
     Dosage: 1 G, BID
     Dates: start: 20100520
  2. SODIUM BICARBONATE [Concomitant]
     Indication: PRODUCT USED FOR UNKNOWN INDICATION
     Dosage: 1 G, TID
     Dates: start: 20100611
  3. THYMOGLOBULIN [Suspect]
     Indication: RENAL TRANSPLANT
     Dosage: 195 MG, QD
     Route: 042
     Dates: start: 20100520, end: 20100524
  4. AMLOR [Concomitant]
     Indication: PRODUCT USED FOR UNKNOWN INDICATION
     Dosage: 10 MG, QD
     Dates: start: 20100617
  5. NEBIVOLOL HCL [Concomitant]
     Indication: PRODUCT USED FOR UNKNOWN INDICATION
     Dosage: 5 MG, QD
     Dates: start: 20100611
  6. EUPRESSYL [Concomitant]
     Indication: PRODUCT USED FOR UNKNOWN INDICATION
     Dosage: 60 MG, TID
     Dates: start: 20100614
  7. PROGRAF [Concomitant]
     Indication: PRODUCT USED FOR UNKNOWN INDICATION
     Dosage: 3 MG, BID
     Dates: start: 20100520
  8. FUMAFER [Concomitant]
     Indication: PRODUCT USED FOR UNKNOWN INDICATION
     Dosage: UNK
  9. SOLU-PRED [Concomitant]
     Indication: PRODUCT USED FOR UNKNOWN INDICATION
     Dosage: 10 MG, QD
     Dates: start: 20100521
  10. MOPRAL [Concomitant]
     Indication: PRODUCT USED FOR UNKNOWN INDICATION
     Dosage: 20 MG, QD
     Dates: start: 20100521
  11. TAHOR [Concomitant]
     Indication: PRODUCT USED FOR UNKNOWN INDICATION
     Dosage: 10 MG, QD
     Dates: start: 20100617
  12. TAHOR [Concomitant]
     Dosage: 20 MG, QD
     Dates: start: 20100617

REACTIONS (11)
  - CANDIDA SEPSIS [None]
  - PNEUMOCYSTIS JIROVECI PNEUMONIA [None]
  - POLYOMAVIRUS-ASSOCIATED NEPHROPATHY [None]
  - BACTERIAL SEPSIS [None]
  - RENAL IMPAIRMENT [None]
  - IMMUNOSUPPRESSION [None]
  - NASOPHARYNGITIS [None]
  - INTERSTITIAL LUNG DISEASE [None]
  - TRANSPLANT REJECTION [None]
  - BACTERIAL PYELONEPHRITIS [None]
  - PYELONEPHRITIS [None]
